FAERS Safety Report 25404380 (Version 1)
Quarter: 2025Q2

REPORT INFORMATION
  Report Type: Spontaneous
  Country: US (occurrence: US)
  Receive Date: 20250606
  Receipt Date: 20250606
  Transmission Date: 20250716
  Serious: Yes (Other)
  Sender: PIERRE FABRE MEDICAMENT
  Company Number: US-PFM-2024-03383

PATIENT
  Sex: Female
  Weight: 8.5 kg

DRUGS (1)
  1. HEMANGEOL [Suspect]
     Active Substance: PROPRANOLOL HYDROCHLORIDE
     Indication: Haemangioma
     Dosage: 3.5 ML, BID (2/DAY)

REACTIONS (3)
  - Seizure [Unknown]
  - Dehydration [Unknown]
  - Blood glucose decreased [Unknown]
